FAERS Safety Report 24043279 (Version 1)
Quarter: 2024Q3

REPORT INFORMATION
  Report Type: Report from Study
  Country: US (occurrence: US)
  Receive Date: 20240702
  Receipt Date: 20240702
  Transmission Date: 20241016
  Serious: Yes (Other)
  Sender: ABBVIE
  Company Number: US-ABBVIE-5818867

PATIENT
  Sex: Female

DRUGS (3)
  1. HUMIRA [Suspect]
     Active Substance: ADALIMUMAB
     Indication: Rheumatoid arthritis
     Route: 058
     Dates: start: 20230316, end: 20240519
  2. HUMIRA [Suspect]
     Active Substance: ADALIMUMAB
     Dosage: FORM STRENGTH: 40 MILLIGRAMS
     Route: 058
     Dates: start: 202406
  3. BACTRIM [Suspect]
     Active Substance: SULFAMETHOXAZOLE\TRIMETHOPRIM
     Indication: Product used for unknown indication
     Route: 065

REACTIONS (14)
  - Bone abscess [Recovered/Resolved]
  - Ear infection [Recovered/Resolved]
  - Staphylococcal infection [Recovered/Resolved]
  - Nasal congestion [Unknown]
  - Headache [Unknown]
  - Acne [Unknown]
  - Blister [Unknown]
  - Joint stiffness [Unknown]
  - Joint swelling [Unknown]
  - Upper respiratory tract infection [Recovered/Resolved]
  - Erythema [Unknown]
  - Pyrexia [Recovered/Resolved]
  - Osteitis [Unknown]
  - Drug hypersensitivity [Unknown]

NARRATIVE: CASE EVENT DATE: 20240101
